FAERS Safety Report 6906736-2 (Version None)
Quarter: 2010Q3

REPORT INFORMATION
  Report Type: 
  Country: None (occurrence: None)
  Receive Date: 20100804
  Receipt Date: 20100723
  Transmission Date: 20110219
  Serious: Yes (Disabling, Other)
  Sender: FDA-Public Use
  Company Number: AU-WYE-G06437510

PATIENT
  Sex: Female

DRUGS (3)
  1. EFFEXOR XR [Suspect]
     Dosage: 300MG EVERY MORNING
  2. BUPRENORPHINE [Concomitant]
     Dosage: 10MG
  3. CLONAZEPAM [Concomitant]

REACTIONS (8)
  - AGITATION [None]
  - CHILLS [None]
  - DRUG DEPENDENCE [None]
  - HEADACHE [None]
  - HYPERHIDROSIS [None]
  - NAUSEA [None]
  - VERTIGO [None]
  - WITHDRAWAL SYNDROME [None]
